FAERS Safety Report 10453981 (Version 2)
Quarter: 2014Q3

REPORT INFORMATION
  Report Type: Spontaneous
  Country: US (occurrence: US)
  Receive Date: 20140915
  Receipt Date: 20140915
  Transmission Date: 20150326
  Serious: Yes (Hospitalization)
  Sender: FDA-Public Use
  Company Number: US-BRISTOL-MYERS SQUIBB COMPANY-20803425

PATIENT
  Age: 85 Year
  Sex: Female

DRUGS (2)
  1. PLAVIX [Suspect]
     Active Substance: CLOPIDOGREL BISULFATE
     Route: 065
  2. ELIQUIS [Suspect]
     Active Substance: APIXABAN
     Dosage: OFF DRUG 9-10 DAYS, RECHAL WITH APIXABAN 2.5 MG 2/D. TIME OF REPORT THERAPY STATUS W APIXABAN UNK
     Route: 065

REACTIONS (1)
  - Gastrointestinal haemorrhage [Unknown]
